FAERS Safety Report 7554294-4 (Version None)
Quarter: 2011Q2

REPORT INFORMATION
  Report Type: 
  Country: None (occurrence: None)
  Receive Date: 20110617
  Receipt Date: 20110614
  Transmission Date: 20111010
  Serious: Yes (Hospitalization, Other)
  Sender: FDA-Public Use
  Company Number: SE-PFIZER INC-2011129470

PATIENT
  Age: 37 Year
  Sex: Female

DRUGS (2)
  1. SULFASALAZINE [Suspect]
     Indication: RHEUMATOID ARTHRITIS
     Dosage: 2 G, 1X/DAY
     Route: 048
     Dates: start: 20101216, end: 20110510
  2. IBUPROFEN [Concomitant]
     Dosage: 400 MG, UNK

REACTIONS (5)
  - TRANSAMINASES INCREASED [None]
  - NAUSEA [None]
  - C-REACTIVE PROTEIN ABNORMAL [None]
  - PYREXIA [None]
  - HEADACHE [None]
